FAERS Safety Report 6936288-2 (Version None)
Quarter: 2010Q3

REPORT INFORMATION
  Report Type: 
  Country: None (occurrence: None)
  Receive Date: 20100817
  Receipt Date: 20100428
  Transmission Date: 20110219
  Serious: No
  Sender: FDA-Public Use
  Company Number: WAES 1003USA00171

PATIENT
  Age: 63 Year
  Sex: Female

DRUGS (6)
  1. ISENTRESS [Suspect]
     Indication: HIV INFECTION
     Dosage: 800 GM/DAILY/PO
     Route: 048
  2. TRUVADA [Suspect]
  3. BACTRIM [Concomitant]
  4. ZOLOFT [Concomitant]
  5. LISINOPRIL [Concomitant]
  6. METOPROLOL TARTRATE [Concomitant]

REACTIONS (1)
  - VOMITING [None]
